FAERS Safety Report 11726630 (Version 2)
Quarter: 2015Q4

REPORT INFORMATION
  Report Type: Spontaneous
  Country: BR (occurrence: BR)
  Receive Date: 20151112
  Receipt Date: 20151209
  Transmission Date: 20160304
  Serious: Yes (Hospitalization, Other)
  Sender: FDA-Public Use
  Company Number: BR-ROCHE-1655150

PATIENT
  Age: 43 Year
  Sex: Female
  Weight: 39 kg

DRUGS (9)
  1. RIVOTRIL [Suspect]
     Active Substance: CLONAZEPAM
     Indication: SEIZURE
     Dosage: FROM 15 TO 17 DROPS AT NIGHT
     Route: 048
     Dates: start: 201411
  2. RIVOTRIL [Suspect]
     Active Substance: CLONAZEPAM
     Indication: SLEEP DISORDER
  3. RIVOTRIL [Suspect]
     Active Substance: CLONAZEPAM
     Indication: PANIC DISORDER
  4. RIVOTRIL [Suspect]
     Active Substance: CLONAZEPAM
     Indication: FEELING OF RELAXATION
  5. RIVOTRIL [Suspect]
     Active Substance: CLONAZEPAM
     Indication: SLEEP DISORDER
  6. GARDENAL [Concomitant]
     Active Substance: PHENOBARBITAL
     Indication: SEIZURE
  7. RIVOTRIL [Suspect]
     Active Substance: CLONAZEPAM
     Indication: PANIC DISORDER
     Dosage: FROM 15 TO 17 DROPS AT NIGHT
     Route: 048
     Dates: start: 201411
  8. RIVOTRIL [Suspect]
     Active Substance: CLONAZEPAM
     Indication: SEIZURE
     Dosage: AS REQUIRED
     Route: 065
     Dates: start: 201404
  9. RIVOTRIL [Suspect]
     Active Substance: CLONAZEPAM
     Indication: FEELING OF RELAXATION

REACTIONS (4)
  - Product dropper issue [Unknown]
  - Weight decreased [Unknown]
  - Oesophageal rupture [Unknown]
  - Wrong technique in product usage process [Unknown]

NARRATIVE: CASE EVENT DATE: 201411
